FAERS Safety Report 8538036-1 (Version None)
Quarter: 2012Q3

REPORT INFORMATION
  Report Type: 
  Country: None (occurrence: None)
  Receive Date: 20120725
  Receipt Date: 20120723
  Transmission Date: 20120928
  Serious: No
  Sender: FDA-Public Use
  Company Number: US-PFIZER INC-2012176701

PATIENT
  Sex: Female
  Weight: 81.633 kg

DRUGS (8)
  1. DEXILANT [Concomitant]
     Indication: GASTROOESOPHAGEAL REFLUX DISEASE
     Dosage: 60 MG, UNK
  2. CRESTOR [Concomitant]
     Indication: BLOOD CHOLESTEROL INCREASED
     Dosage: 20 MG, DAILY
  3. LOSARTAN [Concomitant]
     Indication: HYPERTENSION
     Dosage: 50 MG, DAILY
     Route: 048
  4. ZOLOFT [Concomitant]
     Indication: ANXIETY
     Dosage: 200 MG, DAILY
  5. CYMBALTA [Concomitant]
     Dosage: 60 MG, UNK
  6. LYRICA [Suspect]
     Indication: HERPES ZOSTER
     Dosage: UNK
     Route: 048
     Dates: start: 20120101
  7. AMLODIPINE [Concomitant]
     Indication: HYPERTENSION
     Dosage: 5 MG, 1X/DAY
     Route: 048
  8. ZOLOFT [Concomitant]
     Indication: DEPRESSION

REACTIONS (4)
  - MALAISE [None]
  - WEIGHT INCREASED [None]
  - HYPERPHAGIA [None]
  - INSOMNIA [None]
